FAERS Safety Report 6696686-1 (Version None)
Quarter: 2010Q2

REPORT INFORMATION
  Report Type: 
  Country: None (occurrence: None)
  Receive Date: 20100426
  Receipt Date: 20100419
  Transmission Date: 20101027
  Serious: Yes (Other)
  Sender: FDA-Public Use
  Company Number: FI-WYE-G06000310

PATIENT

DRUGS (1)
  1. RELISTOR [Suspect]
     Dosage: UNSPECIFIED

REACTIONS (1)
  - PAIN [None]
